FAERS Safety Report 19891909 (Version 1)
Quarter: 2021Q3

REPORT INFORMATION
  Report Type: Spontaneous
  Country: US (occurrence: US)
  Receive Date: 20210929
  Receipt Date: 20210929
  Transmission Date: 20211014
  Serious: No
  Sender: FDA-Public Use
  Company Number: US-DRREDDYS-SPO/USA/21/0140480

PATIENT
  Age: 25 Year
  Sex: Female

DRUGS (2)
  1. ACCUTANE [Suspect]
     Active Substance: ISOTRETINOIN
     Dosage: RMA ISSUE DATE:28 JUNE 2021 12:00:00 AM,7 AUGUST 2021 12:00:00 AM,25 AUGUST 2021 12:00:00 AM
  2. ACCUTANE [Suspect]
     Active Substance: ISOTRETINOIN
     Indication: PRODUCT USED FOR UNKNOWN INDICATION
     Dosage: RMA ISSUE DATE:3 MAY 2021 12:00:00 AM,2 JUNE 2021 12:00:00 AM

REACTIONS (1)
  - Conjunctivitis [Unknown]
